FAERS Safety Report 16565583 (Version 1)
Quarter: 2019Q3

REPORT INFORMATION
  Report Type: Spontaneous
  Country: CH (occurrence: CH)
  Receive Date: 20190712
  Receipt Date: 20190712
  Transmission Date: 20191004
  Serious: Yes (Other)
  Sender: FDA-Public Use
  Company Number: CH-PFIZER INC-2019293669

PATIENT
  Age: 85 Year
  Sex: Female

DRUGS (6)
  1. ASPIRIN (E.C.) [Suspect]
     Active Substance: ASPIRIN
     Dosage: 100 MG, UNK
  2. TORASEMIDE [Suspect]
     Active Substance: TORSEMIDE
     Dosage: 30 MG, UNK
  3. TORASEMIDE [Suspect]
     Active Substance: TORSEMIDE
     Indication: CARDIAC FAILURE
     Dosage: 20 MG, UNK
  4. TORASEMIDE [Suspect]
     Active Substance: TORSEMIDE
     Dosage: 10 MG, UNK
  5. ALDACTONE [Suspect]
     Active Substance: SPIRONOLACTONE
     Indication: DIURETIC THERAPY
     Dosage: 50 MG, UNK
     Route: 048
  6. LISINOPRIL. [Suspect]
     Active Substance: LISINOPRIL
     Dosage: 20 MG, UNK

REACTIONS (1)
  - Milk-alkali syndrome [Unknown]
